FAERS Safety Report 13619878 (Version 2)
Quarter: 2017Q3

REPORT INFORMATION
  Report Type: Spontaneous
  Country: AU (occurrence: AU)
  Receive Date: 20170606
  Receipt Date: 20170727
  Transmission Date: 20171127
  Serious: Yes (Disabling, Other)
  Sender: FDA-Public Use
  Company Number: AU-ASTRAZENECA-2017SE52796

PATIENT
  Age: 703 Month
  Sex: Female
  Weight: 51.7 kg

DRUGS (5)
  1. IRBESARTAN HCT [Concomitant]
     Active Substance: HYDROCHLOROTHIAZIDE\IRBESARTAN
     Indication: HYPERTENSION
     Dosage: 150MG/12.5MG DAILY
     Route: 048
     Dates: start: 2016
  2. METFORMIN [Concomitant]
     Active Substance: METFORMIN HYDROCHLORIDE
     Indication: TYPE 2 DIABETES MELLITUS
     Route: 048
     Dates: start: 2005
  3. BYDUREON [Suspect]
     Active Substance: EXENATIDE
     Indication: TYPE 2 DIABETES MELLITUS
     Route: 058
     Dates: start: 201606, end: 20170418
  4. BYDUREON [Suspect]
     Active Substance: EXENATIDE
     Indication: TYPE 2 DIABETES MELLITUS
     Route: 058
     Dates: start: 20160625, end: 20170418
  5. BENZHEXOL [Concomitant]
     Active Substance: TRIHEXYPHENIDYL

REACTIONS (13)
  - Muscular weakness [Unknown]
  - Diarrhoea [Unknown]
  - Hallucination [Unknown]
  - Nausea [Unknown]
  - Paraesthesia [Recovered/Resolved]
  - Fatigue [Unknown]
  - Asthenia [Unknown]
  - Decreased appetite [Unknown]
  - Hypoglycaemia [Unknown]
  - Myalgia [Unknown]
  - Malaise [Recovered/Resolved]
  - Weight decreased [Unknown]
  - Nightmare [Unknown]

NARRATIVE: CASE EVENT DATE: 201607
